FAERS Safety Report 14578712 (Version 1)
Quarter: 2018Q1

REPORT INFORMATION
  Report Type: Spontaneous
  Country: US (occurrence: US)
  Receive Date: 20180227
  Receipt Date: 20180227
  Transmission Date: 20180509
  Serious: No
  Sender: FDA-Public Use
  Company Number: US-BIOGEN-2018BI00530804

PATIENT
  Age: 36 Year
  Sex: Male
  Weight: 97.61 kg

DRUGS (1)
  1. TECFIDERA [Suspect]
     Active Substance: DIMETHYL FUMARATE
     Indication: MULTIPLE SCLEROSIS
     Route: 048

REACTIONS (3)
  - Vomiting [Recovered/Resolved]
  - Depression [Unknown]
  - Anhedonia [Unknown]

NARRATIVE: CASE EVENT DATE: 20180114
